FAERS Safety Report 21998273 (Version 1)
Quarter: 2023Q1

REPORT INFORMATION
  Report Type: Spontaneous
  Country: US (occurrence: US)
  Receive Date: 20230216
  Receipt Date: 20230216
  Transmission Date: 20230418
  Serious: No
  Sender: FDA-Public Use
  Company Number: US-TEVA-2023-US-2851996

PATIENT
  Sex: Female

DRUGS (2)
  1. CLONAZEPAM [Suspect]
     Active Substance: CLONAZEPAM
     Indication: Panic attack
     Dosage: 1 MILLIGRAM
     Route: 065
  2. CLONAZEPAM [Suspect]
     Active Substance: CLONAZEPAM
     Indication: Anxiety

REACTIONS (7)
  - Therapeutic product effect decreased [Unknown]
  - Loss of personal independence in daily activities [Unknown]
  - Insomnia [Unknown]
  - Decreased appetite [Unknown]
  - Asthenia [Unknown]
  - Product use in unapproved indication [Unknown]
  - Drug effect less than expected [Unknown]
